FAERS Safety Report 10138636 (Version 5)
Quarter: 2016Q2

REPORT INFORMATION
  Report Type: Spontaneous
  Country: FR (occurrence: JP)
  Receive Date: 20140429
  Receipt Date: 20160630
  Transmission Date: 20160815
  Serious: Yes (Death, Life-Threatening)
  Sender: FDA-Public Use
  Company Number: JP-FRI-1000066840

PATIENT
  Age: 84 Year
  Sex: Male
  Weight: 49 kg

DRUGS (5)
  1. ACAMPROSATE [Suspect]
     Active Substance: ACAMPROSATE
     Indication: ALCOHOLISM
     Dosage: 1998 MG
     Route: 048
     Dates: start: 20140303, end: 20140317
  2. ADALAT [Concomitant]
     Active Substance: NIFEDIPINE
     Indication: PRODUCT USED FOR UNKNOWN INDICATION
     Dates: start: 20140303, end: 20140414
  3. BLOPRESS [Concomitant]
     Active Substance: CANDESARTAN CILEXETIL
     Indication: PRODUCT USED FOR UNKNOWN INDICATION
     Dates: start: 20140303, end: 20140414
  4. CYANAMIDE [Suspect]
     Active Substance: CYANAMIDE
     Indication: ALCOHOLISM
     Dosage: 30 MG
     Route: 048
     Dates: start: 20140317, end: 20140331
  5. SERMION [Concomitant]
     Active Substance: NICERGOLINE
     Indication: PRODUCT USED FOR UNKNOWN INDICATION
     Dates: start: 20140303, end: 20140414

REACTIONS (3)
  - Subdural haematoma [Fatal]
  - Subarachnoid haematoma [Fatal]
  - Acute kidney injury [Not Recovered/Not Resolved]

NARRATIVE: CASE EVENT DATE: 20140414
